FAERS Safety Report 5199678-7 (Version None)
Quarter: 2007Q1

REPORT INFORMATION
  Report Type: 
  Country: None (occurrence: None)
  Receive Date: 20070105
  Receipt Date: 20061229
  Transmission Date: 20070707
  Serious: Yes (Death)
  Sender: FDA-Public Use
  Company Number: US-JNJFOC-20070100122

PATIENT
  Age: 83 Year
  Sex: Male
  Weight: 86.18 kg

DRUGS (2)
  1. EXTRA STRENGTH TYLENOL [Suspect]
  2. EXTRA STRENGTH TYLENOL [Suspect]
     Indication: NECK PAIN
     Dosage: 2000MG EVERY 4-6 HOURS DAILY FOR 3 MONTHS

REACTIONS (3)
  - INTENTIONAL OVERDOSE [None]
  - MYOCARDIAL INFARCTION [None]
  - RENAL FAILURE [None]
